FAERS Safety Report 9524871 (Version 2)
Quarter: 2013Q4

REPORT INFORMATION
  Report Type: Report from Study
  Country: US (occurrence: US)
  Receive Date: 20130916
  Receipt Date: 20131002
  Transmission Date: 20140711
  Serious: Yes (Hospitalization)
  Sender: FDA-Public Use
  Company Number: US-ALEXION-A201302194

PATIENT
  Age: 7 Year
  Sex: Male
  Weight: 26.6 kg

DRUGS (9)
  1. ECULIZUMAB [Suspect]
     Indication: HAEMOLYTIC URAEMIC SYNDROME
     Dosage: 600 MG, Q2W
     Route: 042
  2. CULTURELLE [Concomitant]
     Dosage: 1 DF, QD
     Route: 048
  3. RAPAMUNE [Concomitant]
     Dosage: 1 MG, TID
     Route: 048
  4. PREVACID [Concomitant]
     Dosage: 30 MG, QD
     Route: 048
  5. ASACOL [Concomitant]
     Dosage: 400 MG, BID
     Route: 048
  6. IMURAN [Concomitant]
     Dosage: 50 MG, QD
     Route: 048
  7. FERROUS SULFATE [Concomitant]
     Dosage: 325 MG, UNK
     Route: 048
  8. DELTASONE [Concomitant]
     Dosage: 3 MG, QD
     Route: 048
  9. BACTRIM [Concomitant]
     Dosage: 80-400 MG, MON.WED.FRI.
     Route: 048

REACTIONS (1)
  - Pyrexia [Recovered/Resolved]
